FAERS Safety Report 4632520-9 (Version None)
Quarter: 2005Q2

REPORT INFORMATION
  Report Type: 
  Country: None (occurrence: None)
  Receive Date: 20050411
  Receipt Date: 20050306
  Transmission Date: 20051028
  Serious: Yes (Death)
  Sender: FDA-Public Use
  Company Number: CIO05004402

PATIENT
  Age: 30 Year
  Sex: Male

DRUGS (2)
  1. NYQUIL, FORM/VERSION/FLAVOR UNKNOWN(ETHANOL, CHLORPHENAMINE MAELATE, D [Suspect]
     Dosage: DOSE, ORAL
     Route: 048
  2. ANTIHYPERTENSIVES [Concomitant]

REACTIONS (1)
  - DRUG INTERACTION [None]
